FAERS Safety Report 18163112 (Version 2)
Quarter: 2020Q3

REPORT INFORMATION
  Report Type: Report from Study
  Country: IT (occurrence: IT)
  Receive Date: 20200818
  Receipt Date: 20200820
  Transmission Date: 20201103
  Serious: Yes (Death, Other)
  Sender: FDA-Public Use
  Company Number: IT-PFIZER INC-2020316486

PATIENT
  Age: 59 Year
  Sex: Male

DRUGS (1)
  1. METHOTREXATE SODIUM. [Suspect]
     Active Substance: METHOTREXATE SODIUM
     Indication: LUNG NEOPLASM
     Dosage: 40 MG/M2, CYCLIC
     Route: 042

REACTIONS (2)
  - Oral toxicity [Not Recovered/Not Resolved]
  - Hepatorenal failure [Fatal]
